FAERS Safety Report 16500036 (Version 2)
Quarter: 2019Q3

REPORT INFORMATION
  Report Type: Spontaneous
  Country: DE (occurrence: DE)
  Receive Date: 20190701
  Receipt Date: 20190824
  Transmission Date: 20191004
  Serious: Yes (Other)
  Sender: FDA-Public Use
  Company Number: PHHY2019DE145115

PATIENT
  Age: 7 Month
  Sex: Male
  Weight: 1.92 kg

DRUGS (15)
  1. LEVETIRACETAM. [Suspect]
     Active Substance: LEVETIRACETAM
     Dosage: MATERNAL DOSE: 4 DF, QD (UNK, 4X/DAY (QID) 1000-1000-500-1000)
     Route: 064
  2. LACOSAMIDE. [Suspect]
     Active Substance: LACOSAMIDE
     Indication: FOETAL EXPOSURE DURING PREGNANCY
     Dosage: MATERNAL DOSE: 200 MG, QD (100 MG, 2X/DAY (BID))
     Route: 064
  3. LACOSAMIDE. [Suspect]
     Active Substance: LACOSAMIDE
     Dosage: MATERNAL DOSE: 100 MG, QD
     Route: 064
  4. PREGABALIN. [Concomitant]
     Active Substance: PREGABALIN
     Dosage: MATERNAL DOSE: UNK (TOTAL: 750 (150-150-150-300))
     Route: 064
  5. LACOSAMIDE. [Suspect]
     Active Substance: LACOSAMIDE
     Dosage: MATERNAL DOSE: 100 MG, QD (50 MG, 2X/DAY (BID) 50-0-50)
     Route: 064
  6. LACOSAMIDE. [Suspect]
     Active Substance: LACOSAMIDE
     Dosage: MATERNAL DOSE: 100 MG, QD (50 MG, 2X/DAY (BID) 50-0-50)
     Route: 064
  7. LEVETIRACETAM. [Suspect]
     Active Substance: LEVETIRACETAM
     Dosage: MATERNAL DOSE: 1500 MG, 2X/DAY (BID) (1500-0-1500)
     Route: 064
  8. LEVETIRACETAM. [Suspect]
     Active Substance: LEVETIRACETAM
     Dosage: MATERNAL DSOE: UNKNOWN (DOSE INCREASED)
     Route: 064
  9. PREGABALIN. [Concomitant]
     Active Substance: PREGABALIN
     Dosage: MATERNAL DOSE:UNK (TOTAL: 750  (150-300-300))
     Route: 064
  10. PREGABALIN. [Concomitant]
     Active Substance: PREGABALIN
     Dosage: MATERNAL DOSE: (TOTAL: 750 (150-150-150-300))
     Route: 064
  11. LACOSAMIDE. [Suspect]
     Active Substance: LACOSAMIDE
     Dosage: MATERNAL DOSE: 100 MG, QD
     Route: 064
  12. LEVETIRACETAM. [Suspect]
     Active Substance: LEVETIRACETAM
     Indication: FOETAL EXPOSURE DURING PREGNANCY
     Dosage: UNK (MOTHER DOSE: 750 MG X2 (DAILY DOSE: 1500 MG))
     Route: 064
  13. LEVETIRACETAM. [Suspect]
     Active Substance: LEVETIRACETAM
     Dosage: MATERNAL DOSE: UNKNOWN
     Route: 063
  14. PREGABALIN. [Concomitant]
     Active Substance: PREGABALIN
     Indication: FOETAL EXPOSURE DURING PREGNANCY
     Dosage: MATERNAL DOSE: (TOTAL: 750 (150-150-150-300))
     Route: 063
  15. LEVETIRACETAM. [Suspect]
     Active Substance: LEVETIRACETAM
     Dosage: MATERNAL DOSE: 4 DF, QD (UNK, 4X/DAY (QID) 1000-1000-500-1000)
     Route: 064

REACTIONS (5)
  - Exposure via breast milk [Unknown]
  - Premature baby [Unknown]
  - Foetal exposure during pregnancy [Unknown]
  - Low birth weight baby [Unknown]
  - Maternal exposure during pregnancy [Unknown]

NARRATIVE: CASE EVENT DATE: 20141127
